FAERS Safety Report 26022571 (Version 1)
Quarter: 2025Q4

REPORT INFORMATION
  Report Type: Spontaneous
  Country: US (occurrence: None)
  Receive Date: 20251110
  Receipt Date: 20251110
  Transmission Date: 20260118
  Serious: No
  Sender: FDA-CTU
  Company Number: None

PATIENT
  Age: 84 Year
  Sex: Female

DRUGS (1)
  1. SCEMBLIX [Suspect]
     Active Substance: ASCIMINIB HYDROCHLORIDE
     Dosage: 20 MG TID ORAL
     Route: 048

REACTIONS (5)
  - Near death experience [None]
  - Pancreatitis [None]
  - Pain [None]
  - Musculoskeletal chest pain [None]
  - Flatulence [None]

NARRATIVE: CASE EVENT DATE: 20251110
